FAERS Safety Report 9498811 (Version 1)
Quarter: 2013Q3

REPORT INFORMATION
  Report Type: Spontaneous
  Country: BR (occurrence: BR)
  Receive Date: 20130904
  Receipt Date: 20130904
  Transmission Date: 20140515
  Serious: Yes (Hospitalization, Other)
  Sender: FDA-Public Use
  Company Number: BR-ABBOTT-13P-020-1140034-00

PATIENT
  Age: 62 Year
  Sex: Female
  Weight: 80 kg

DRUGS (16)
  1. HUMIRA [Suspect]
     Indication: RHEUMATOID ARTHRITIS
     Route: 058
     Dates: start: 20121027, end: 201307
  2. HUMIRA [Suspect]
     Route: 058
     Dates: start: 20130810
  3. METHOTREXATE [Suspect]
     Indication: RHEUMATOID ARTHRITIS
     Route: 048
     Dates: start: 200208
  4. PREDNISOLONE [Concomitant]
     Indication: PAIN
     Route: 048
     Dates: start: 200208
  5. NAPROSYN [Concomitant]
     Indication: PRODUCT USED FOR UNKNOWN INDICATION
     Route: 048
     Dates: start: 200208
  6. OMEPRAZOLE [Concomitant]
     Indication: GASTRIC DISORDER
     Dosage: IN FASTING
     Route: 048
     Dates: start: 200208
  7. FOLIC ACID [Concomitant]
     Indication: VITAMIN SUPPLEMENTATION
     Route: 048
     Dates: start: 200208
  8. MODURETIC [Concomitant]
     Indication: DIURETIC THERAPY
     Route: 048
     Dates: start: 200208
  9. LOSARTAN POTASSIUM [Concomitant]
     Indication: HYPERTENSION
     Route: 048
     Dates: start: 200208
  10. ATRAZ [Concomitant]
     Indication: HYPERTENSION
     Route: 048
     Dates: start: 200208
  11. PONDERA [Concomitant]
     Indication: ANTIDEPRESSANT THERAPY
     Route: 048
     Dates: start: 200208
  12. BROMAZEPAM [Concomitant]
     Indication: SLEEP DISORDER THERAPY
     Dosage: AT NIGHT
     Route: 048
     Dates: start: 200208
  13. CHELATED CALCIUM + VITAMIN B3 [Concomitant]
     Indication: OSTEOPOROSIS
     Route: 048
     Dates: start: 201109
  14. PROTOS [Concomitant]
     Indication: CALCIUM METABOLISM DISORDER
     Dosage: AFTER LUNCH
     Route: 048
     Dates: start: 201109
  15. SINVASCOR [Concomitant]
     Indication: BLOOD CHOLESTEROL INCREASED
     Route: 048
     Dates: start: 201109
  16. ARAVA [Concomitant]
     Indication: RHEUMATOID ARTHRITIS
     Dosage: AFTER LUNCH
     Route: 048
     Dates: start: 201305

REACTIONS (13)
  - Cardiac disorder [Unknown]
  - Knee deformity [Not Recovered/Not Resolved]
  - Hypotension [Recovering/Resolving]
  - Arthralgia [Unknown]
  - Migraine [Not Recovered/Not Resolved]
  - Urinary incontinence [Not Recovered/Not Resolved]
  - Diplopia [Not Recovered/Not Resolved]
  - Visual impairment [Unknown]
  - Bronchitis [Recovered/Resolved]
  - Weight decreased [Unknown]
  - Eye pain [Not Recovered/Not Resolved]
  - Blood glucose abnormal [Unknown]
  - Rheumatoid arthritis [Unknown]
